FAERS Safety Report 5505467-3 (Version None)
Quarter: 2007Q4

REPORT INFORMATION
  Report Type: 
  Country: None (occurrence: None)
  Receive Date: 20071102
  Receipt Date: 20071019
  Transmission Date: 20080405
  Serious: Yes (Other)
  Sender: FDA-Public Use
  Company Number: GB-PURDUE-GBR_2007_0003383

PATIENT
  Sex: Male

DRUGS (1)
  1. OXYNORM CAPSULES 10 MG [Suspect]
     Indication: BACK PAIN
     Dosage: 10 MG, UNK
     Route: 065

REACTIONS (3)
  - DRUG LEVEL FLUCTUATING [None]
  - MEDICATION TAMPERING [None]
  - UNDERDOSE [None]
